FAERS Safety Report 8640686 (Version 2)
Quarter: 2012Q4

REPORT INFORMATION
  Report Type: 
  Country: US (occurrence: US)
  Receive Date: 20120628
  Receipt Date: 20121126
  Transmission Date: 20130627
  Serious: Yes (Hospitalization)
  Sender: FDA-Public Use
  Company Number: US-BAYER-2012-062267

PATIENT
  Age: 34 Year
  Sex: Female
  Weight: 81.63 kg

DRUGS (10)
  1. YASMIN [Suspect]
     Indication: MENSTRUAL MIGRAINE
     Dosage: UNK
     Dates: start: 201010, end: 201012
  2. YAZ [Suspect]
     Dosage: UNK
     Dates: start: 201010, end: 201012
  3. VERAPAMIL [Concomitant]
     Indication: MIGRAINE
  4. IBUPROFEN [Concomitant]
     Dosage: UNK UNK, PRN
  5. NAPROSYN [Concomitant]
     Dosage: UNK UNK, PRN
  6. VITAMINS [Concomitant]
  7. AZITHROMYCIN [Concomitant]
     Dosage: 500 mg, UNK
  8. PROAIR HFA [Concomitant]
  9. BENZONATATE [Concomitant]
     Dosage: 200 mg, UNK
  10. TYLENOL [Concomitant]

REACTIONS (7)
  - General physical health deterioration [None]
  - Pulmonary embolism [Recovering/Resolving]
  - Injury [Recovering/Resolving]
  - Pain [Recovering/Resolving]
  - Anxiety [None]
  - Pain [None]
  - Emotional distress [None]
